FAERS Safety Report 16483140 (Version 1)
Quarter: 2019Q2

REPORT INFORMATION
  Report Type: Spontaneous
  Country: US (occurrence: US)
  Receive Date: 20190516
  Receipt Date: 20190516
  Transmission Date: 20190711
  Serious: No
  Sender: FDA-Public Use
  Company Number: None

PATIENT
  Age: 44 Year
  Sex: Female
  Weight: 140.61 kg

DRUGS (1)
  1. ORENCIA [Suspect]
     Active Substance: ABATACEPT
     Indication: CONNECTIVE TISSUE DISORDER
     Route: 058
     Dates: start: 201903

REACTIONS (3)
  - Therapy cessation [None]
  - Malaise [None]
  - Infection [None]
